FAERS Safety Report 12564380 (Version 1)
Quarter: 2016Q3

REPORT INFORMATION
  Report Type: Spontaneous
  Country: None (occurrence: None)
  Receive Date: 20160715
  Receipt Date: 20160715
  Transmission Date: 20161109
  Serious: No
  Sender: FDA-Public Use
  Company Number: None

PATIENT
  Age: 23 Year
  Sex: Male
  Weight: 124.74 kg

DRUGS (4)
  1. BUPROPION EXTENDED RELEASE (XL), 300 MG [Suspect]
     Active Substance: BUPROPION
     Indication: DEPRESSION
     Route: 048
  2. CELEXA (CITALOPRAM) [Concomitant]
  3. WELLBUTRIN XL (BUPROPION XL) [Concomitant]
  4. LISINOPRIL. [Concomitant]
     Active Substance: LISINOPRIL

REACTIONS (2)
  - Nightmare [None]
  - Product substitution issue [None]

NARRATIVE: CASE EVENT DATE: 20141116
